FAERS Safety Report 5605339-X (Version None)
Quarter: 2008Q1

REPORT INFORMATION
  Report Type: 
  Country: None (occurrence: None)
  Receive Date: 20080129
  Receipt Date: 20080116
  Transmission Date: 20080703
  Serious: Yes (Death, Other)
  Sender: FDA-Public Use
  Company Number: FR-PFIZER INC-2008006152

PATIENT
  Age: 75 Year
  Sex: Female

DRUGS (2)
  1. TAHOR [Suspect]
  2. ACETAMINOPHEN W/ PROPOXYPHENE HCL [Suspect]

REACTIONS (2)
  - DEATH [None]
  - HEPATITIS [None]
